FAERS Safety Report 9885460 (Version 1)
Quarter: 2014Q1

REPORT INFORMATION
  Report Type: Spontaneous
  Country: CN (occurrence: CN)
  Receive Date: 20140210
  Receipt Date: 20140210
  Transmission Date: 20141002
  Serious: Yes (Hospitalization)
  Sender: FDA-Public Use
  Company Number: CN-BAYER-2014-019444

PATIENT
  Age: 57 Year
  Sex: Female

DRUGS (2)
  1. IOPROMIDE [Suspect]
     Indication: COMPUTERISED TOMOGRAM
     Dosage: 75 ML, UNK
     Route: 041
     Dates: start: 20130625
  2. IOPROMIDE [Suspect]
     Indication: NECK MASS

REACTIONS (15)
  - Speech disorder [Recovering/Resolving]
  - Muscular weakness [Recovering/Resolving]
  - Dizziness [Recovering/Resolving]
  - Abasia [Recovered/Resolved]
  - Hyperhidrosis [None]
  - Dyspnoea [None]
  - Nausea [Recovering/Resolving]
  - Dysphagia [Recovered/Resolved]
  - Laryngeal oedema [Recovered/Resolved]
  - Nervous system disorder [Recovering/Resolving]
  - Respiratory rate increased [None]
  - Hypopnoea [None]
  - Aphasia [None]
  - Central nervous system lesion [None]
  - Brain hypoxia [None]
